FAERS Safety Report 16853826 (Version 1)
Quarter: 2019Q3

REPORT INFORMATION
  Report Type: Spontaneous
  Country: FR (occurrence: FR)
  Receive Date: 20190926
  Receipt Date: 20190926
  Transmission Date: 20191005
  Serious: Yes (Hospitalization)
  Sender: FDA-Public Use
  Company Number: FR-AUROBINDO-AUR-APL-2019-062158

PATIENT
  Age: 1 Month
  Sex: Male
  Weight: 1.65 kg

DRUGS (2)
  1. HYDROCHLOROTHIAZIDE. [Suspect]
     Active Substance: HYDROCHLOROTHIAZIDE
     Indication: BRONCHOPULMONARY DYSPLASIA
     Dosage: UNK
     Route: 065
     Dates: start: 20190614, end: 20190617
  2. SPIRONOLACTONE. [Suspect]
     Active Substance: SPIRONOLACTONE
     Indication: BRONCHOPULMONARY DYSPLASIA
     Dosage: UNK
     Route: 065
     Dates: start: 20190614, end: 20190617

REACTIONS (1)
  - Hyponatraemia [Recovered/Resolved]

NARRATIVE: CASE EVENT DATE: 20190617
